FAERS Safety Report 6772144-0 (Version None)
Quarter: 2010Q2

REPORT INFORMATION
  Report Type: 
  Country: None (occurrence: None)
  Receive Date: 20100616
  Receipt Date: 20100614
  Transmission Date: 20101027
  Serious: Yes (Hospitalization)
  Sender: FDA-Public Use
  Company Number: D0067814A

PATIENT
  Age: 69 Year
  Sex: Female

DRUGS (3)
  1. REQUIP [Suspect]
     Dosage: 6MG PER DAY
     Route: 048
     Dates: start: 20100510
  2. CARBIDOPA AND LEVODOPA [Suspect]
     Route: 065
  3. ROPINIROLE [Suspect]
     Dosage: 1MG THREE TIMES PER DAY
     Route: 065

REACTIONS (5)
  - BLOOD PRESSURE INCREASED [None]
  - GENERAL PHYSICAL HEALTH DETERIORATION [None]
  - INAPPROPRIATE SCHEDULE OF DRUG ADMINISTRATION [None]
  - RESTLESSNESS [None]
  - WITHDRAWAL SYNDROME [None]
